FAERS Safety Report 6290717-9 (Version None)
Quarter: 2009Q3

REPORT INFORMATION
  Report Type: 
  Country: None (occurrence: None)
  Receive Date: 20090727
  Receipt Date: 20090427
  Transmission Date: 20100115
  Serious: Yes (Hospitalization)
  Sender: FDA-Public Use
  Company Number: OMPQ-PR-0904S-0291

PATIENT
  Age: 53 Year
  Sex: Male

DRUGS (1)
  1. OMNIPAQUE 300 [Suspect]
     Indication: BACK PAIN
     Dosage: 14 ML, SINGLE DOSE, IT
     Route: 038
     Dates: start: 20090423, end: 20090423

REACTIONS (2)
  - EXPOSURE TO TOXIC AGENT [None]
  - MENINGITIS [None]
